FAERS Safety Report 9665668 (Version 3)
Quarter: 2013Q4

REPORT INFORMATION
  Report Type: Report from Study
  Country: MX (occurrence: MX)
  Receive Date: 20131104
  Receipt Date: 20131125
  Transmission Date: 20140711
  Serious: Yes (Other)
  Sender: FDA-Public Use
  Company Number: PHHY2013MX121019

PATIENT
  Age: 73 Year
  Sex: Female

DRUGS (1)
  1. ACLASTA [Suspect]
     Indication: OSTEOPOROSIS
     Dosage: 5 MG/100ML,  ANNUAL
     Route: 042
     Dates: start: 201209

REACTIONS (4)
  - Fall [Recovering/Resolving]
  - Ankle fracture [Recovering/Resolving]
  - Bone density decreased [Not Recovered/Not Resolved]
  - Drug ineffective [Not Recovered/Not Resolved]
